FAERS Safety Report 17898538 (Version 2)
Quarter: 2020Q3

REPORT INFORMATION
  Report Type: Report from Study
  Country: US (occurrence: US)
  Receive Date: 20200615
  Receipt Date: 20200708
  Transmission Date: 20201103
  Serious: Yes (Hospitalization)
  Sender: FDA-Public Use
  Company Number: US-GILEAD-2020-0471686

PATIENT
  Age: 61 Year
  Sex: Male
  Weight: 106 kg

DRUGS (100)
  1. AXICABTAGENE CILOLEUCEL [Suspect]
     Active Substance: AXICABTAGENE CILOLEUCEL
     Indication: B-CELL LYMPHOMA
     Dosage: 68
     Route: 042
     Dates: start: 20200518, end: 20200518
  2. LORATADINE. [Concomitant]
     Active Substance: LORATADINE
     Dosage: 5,MG,DAILY
     Route: 048
     Dates: start: 2000
  3. PROCHLORPERAZINE. [Concomitant]
     Active Substance: PROCHLORPERAZINE
     Dosage: 10,MG,AS NECESSARY
     Route: 048
     Dates: start: 2000
  4. ONDANSETRON [Concomitant]
     Active Substance: ONDANSETRON
     Dosage: 4,MG,ONCE
     Route: 042
     Dates: start: 20200512, end: 20200512
  5. ONDANSETRON [Concomitant]
     Active Substance: ONDANSETRON
     Dosage: 8,MG,DAILY
     Route: 048
     Dates: start: 20200524, end: 20200525
  6. OMEPRAZOLE. [Concomitant]
     Active Substance: OMEPRAZOLE
     Dosage: 20,MG,TWICE DAILY
     Route: 048
     Dates: start: 20200512
  7. OMEPRAZOLE. [Concomitant]
     Active Substance: OMEPRAZOLE
     Dosage: 20,MG,TWICE DAILY
     Route: 048
     Dates: start: 20200512, end: 20200601
  8. OMEPRAZOLE. [Concomitant]
     Active Substance: OMEPRAZOLE
     Dosage: 20,MG,DAILY
     Route: 048
     Dates: start: 20200610, end: 20200610
  9. SODIUM CHLORIDE 0.9% [Concomitant]
     Active Substance: SODIUM CHLORIDE
     Dosage: 500,ML,DAILY
     Route: 042
     Dates: start: 20200612, end: 20200612
  10. SODIUM CHLORIDE 0.9% [Concomitant]
     Active Substance: SODIUM CHLORIDE
     Dosage: 1000,ML,DAILY
     Route: 042
     Dates: start: 20200617, end: 20200617
  11. ACYCLOVIR [ACICLOVIR SODIUM] [Concomitant]
     Active Substance: ACYCLOVIR
     Dosage: 800,MG,DAILY
     Route: 048
     Dates: start: 20200517, end: 20200517
  12. DIPHENHYDRAMINE. [Concomitant]
     Active Substance: DIPHENHYDRAMINE
     Dosage: 25,MG,DAILY
     Route: 042
     Dates: start: 20200530, end: 20200530
  13. LORAZEPAM. [Concomitant]
     Active Substance: LORAZEPAM
     Dosage: 0.5,MG,ONCE
     Route: 048
     Dates: start: 20200525, end: 20200525
  14. OLANZAPINE. [Concomitant]
     Active Substance: OLANZAPINE
     Dosage: 5,MG,DAILY
     Route: 048
     Dates: start: 20200525, end: 20200531
  15. APAP/CODEINE [CODEINE PHOSPHATE;PARACETAMOL] [Concomitant]
     Dosage: 50/40/325,MG,ONCE
     Route: 048
     Dates: start: 20200526, end: 20200526
  16. POTASSIUM CHLORIDE. [Concomitant]
     Active Substance: POTASSIUM CHLORIDE
     Dosage: 20,OTHER,DAILY
     Route: 048
     Dates: start: 20200529, end: 20200529
  17. LOPERAMIDE [Concomitant]
     Active Substance: LOPERAMIDE
     Dosage: 2,MG,TWICE DAILY
     Route: 048
     Dates: start: 20200531, end: 20200531
  18. PENTAMIDINE [Concomitant]
     Active Substance: PENTAMIDINE
     Dosage: 300,MG,DAILY
     Route: 042
     Dates: start: 20200617, end: 20200617
  19. PROCHLORPERAZINE. [Concomitant]
     Active Substance: PROCHLORPERAZINE
     Dosage: 10,MG,TWICE DAILY
     Route: 042
     Dates: start: 20200524, end: 20200524
  20. MAGNESIUM SULFATE. [Concomitant]
     Active Substance: MAGNESIUM SULFATE
     Dosage: 4,G,DAILY
     Route: 042
     Dates: start: 20200524, end: 20200525
  21. LORAZEPAM. [Concomitant]
     Active Substance: LORAZEPAM
     Dosage: 0.25,MG,ONCE
     Route: 042
     Dates: start: 20200525, end: 20200525
  22. OXYCODONE [Concomitant]
     Active Substance: OXYCODONE
     Dosage: 5,MG,DAILY
     Route: 048
     Dates: start: 20200529, end: 20200529
  23. POLYETHYLENE GLYCOL 3350. [Concomitant]
     Active Substance: POLYETHYLENE GLYCOL 3350
     Dosage: 17,MG,AS NECESSARY
     Route: 048
     Dates: start: 2000
  24. PROCHLORPERAZINE. [Concomitant]
     Active Substance: PROCHLORPERAZINE
     Dosage: 5,MG,DAILY
     Route: 042
     Dates: start: 20200530, end: 20200531
  25. TAMSULOSIN [Concomitant]
     Active Substance: TAMSULOSIN
     Dosage: 0.8,MG,DAILY
     Route: 048
     Dates: start: 2000
  26. ASPIRIN (E.C.) [Concomitant]
     Active Substance: ASPIRIN
     Dosage: 81,MG,DAILY
     Route: 048
     Dates: start: 20200212
  27. CEFAZOLIN [Concomitant]
     Active Substance: CEFAZOLIN
     Dosage: 2,G,ONCE
     Route: 042
     Dates: start: 20200512, end: 20200512
  28. ONDANSETRON [Concomitant]
     Active Substance: ONDANSETRON
     Dosage: 8,MG,DAILY
     Route: 048
     Dates: start: 20200517, end: 20200518
  29. SODIUM CHLORIDE 0.9% [Concomitant]
     Active Substance: SODIUM CHLORIDE
     Dosage: 1000,ML,TWICE DAILY
     Route: 042
     Dates: start: 20200513, end: 20200515
  30. SODIUM CHLORIDE 0.9% [Concomitant]
     Active Substance: SODIUM CHLORIDE
     Dosage: 1000,ML,TWICE DAILY
     Route: 042
     Dates: start: 20200524, end: 20200524
  31. SODIUM CHLORIDE 0.9% [Concomitant]
     Active Substance: SODIUM CHLORIDE
     Dosage: 1000,ML,DAILY
     Route: 042
     Dates: start: 20200606, end: 20200606
  32. ACETAMINOPHEN. [Concomitant]
     Active Substance: ACETAMINOPHEN
     Dosage: 650,MG,DAILY
     Route: 048
     Dates: start: 20200518, end: 20200518
  33. ACETAMINOPHEN. [Concomitant]
     Active Substance: ACETAMINOPHEN
     Dosage: 650,MG,TWICE DAILY
     Route: 048
     Dates: start: 20200528, end: 20200528
  34. ACETAMINOPHEN. [Concomitant]
     Active Substance: ACETAMINOPHEN
     Dosage: 650,MG,DAILY
     Route: 048
     Dates: start: 20200601, end: 20200601
  35. CEFEPIME [Concomitant]
     Active Substance: CEFEPIME HYDROCHLORIDE
     Dosage: 2000,MG,THREE TIMES DAILY
     Route: 042
     Dates: start: 20200525, end: 20200526
  36. OLANZAPINE. [Concomitant]
     Active Substance: OLANZAPINE
     Dosage: 5,MG,DAILY
     Route: 048
     Dates: start: 20200609, end: 20200609
  37. OXYCODONE [Concomitant]
     Active Substance: OXYCODONE
     Dosage: 5,MG,THREE TIMES DAILY
     Route: 048
     Dates: start: 20200526, end: 20200526
  38. CYCLOPHOSPHAMIDE. [Suspect]
     Active Substance: CYCLOPHOSPHAMIDE
     Indication: BONE MARROW CONDITIONING REGIMEN
     Dosage: 500
     Route: 042
     Dates: start: 20200513, end: 20200515
  39. FENTANYL. [Concomitant]
     Active Substance: FENTANYL
     Dosage: 25,UG,FOUR TIMES DAILY
     Route: 042
     Dates: start: 20200512, end: 20200512
  40. SODIUM CHLORIDE 0.9% [Concomitant]
     Active Substance: SODIUM CHLORIDE
     Dosage: 1000,ML,DAILY
     Route: 042
     Dates: start: 20200602, end: 20200603
  41. ALLOPURINOL. [Concomitant]
     Active Substance: ALLOPURINOL
     Dosage: 300,MG,DAILY
     Route: 048
     Dates: start: 20200518, end: 20200601
  42. LORAZEPAM. [Concomitant]
     Active Substance: LORAZEPAM
     Dosage: 0.5,MG,DAILY
     Route: 048
     Dates: start: 20200531, end: 20200531
  43. OXYCODONE [Concomitant]
     Active Substance: OXYCODONE
     Dosage: 5,MG,AS NECESSARY
     Route: 048
     Dates: start: 20200525, end: 20200525
  44. MAGNESIUM OXIDE. [Concomitant]
     Active Substance: MAGNESIUM OXIDE
     Dosage: 400,MG,DAILY
     Route: 048
     Dates: start: 20200603, end: 20200604
  45. PROCHLORPERAZINE. [Concomitant]
     Active Substance: PROCHLORPERAZINE
     Dosage: 10,MG,DAILY
     Route: 042
     Dates: start: 20200529, end: 20200529
  46. PROCHLORPERAZINE. [Concomitant]
     Active Substance: PROCHLORPERAZINE
     Dosage: 10,MG,DAILY
     Route: 042
     Dates: start: 20200601, end: 20200601
  47. CHOLECALCIFEROL [Concomitant]
     Active Substance: CHOLECALCIFEROL
     Dosage: 500,IU,DAILY
     Route: 048
     Dates: start: 20200507
  48. SODIUM CHLORIDE 0.9% [Concomitant]
     Active Substance: SODIUM CHLORIDE
     Dosage: 1000,ML,TWICE DAILY
     Route: 042
     Dates: start: 20200526, end: 20200526
  49. SODIUM CHLORIDE 0.9% [Concomitant]
     Active Substance: SODIUM CHLORIDE
     Dosage: 1000,ML,TWICE DAILY
     Route: 042
     Dates: start: 20200530, end: 20200601
  50. LEVETIRACETAM. [Concomitant]
     Active Substance: LEVETIRACETAM
     Dosage: 750,MG,TWICE DAILY
     Route: 048
     Dates: start: 20200518
  51. ACETAMINOPHEN. [Concomitant]
     Active Substance: ACETAMINOPHEN
     Dosage: 650,MG,FOUR TIMES DAILY
     Route: 048
     Dates: start: 20200527, end: 20200527
  52. CIPROFLOXACIN. [Concomitant]
     Active Substance: CIPROFLOXACIN
     Dosage: 500,MG,TWICE DAILY
     Route: 048
     Dates: start: 20200518, end: 20200524
  53. DIPHENHYDRAMINE. [Concomitant]
     Active Substance: DIPHENHYDRAMINE
     Dosage: 25,MG,ONCE
     Route: 042
     Dates: start: 20200518, end: 20200518
  54. DIPHENHYDRAMINE. [Concomitant]
     Active Substance: DIPHENHYDRAMINE
     Dosage: 25,MG,DAILY
     Route: 042
     Dates: start: 20200531, end: 20200601
  55. MAGNESIUM SULFATE. [Concomitant]
     Active Substance: MAGNESIUM SULFATE
     Dosage: 2,G,DAILY
     Route: 042
     Dates: start: 20200518
  56. MAGNESIUM SULFATE. [Concomitant]
     Active Substance: MAGNESIUM SULFATE
     Dosage: 2,G,DAILY
     Route: 042
     Dates: start: 20200526, end: 20200529
  57. LORAZEPAM. [Concomitant]
     Active Substance: LORAZEPAM
     Dosage: 0.5,MG,AS NECESSARY
     Route: 048
     Dates: start: 20200524, end: 20200524
  58. CEFEPIME [Concomitant]
     Active Substance: CEFEPIME HYDROCHLORIDE
     Dosage: 2000,MG,TWICE DAILY
     Route: 042
     Dates: start: 20200527, end: 20200527
  59. APAP/CODEINE [CODEINE PHOSPHATE;PARACETAMOL] [Concomitant]
     Dosage: 50/40/325,MG,TWICE DAILY
     Route: 048
     Dates: start: 20200529, end: 20200530
  60. POTASSIUM CHLORIDE. [Concomitant]
     Active Substance: POTASSIUM CHLORIDE
     Dosage: 20,OTHER,TWICE DAILY
     Route: 042
     Dates: start: 20200528, end: 20200528
  61. PIPERACILLIN AND TAZOBACTAM [Concomitant]
     Active Substance: PIPERACILLIN SODIUM\TAZOBACTAM SODIUM
     Dosage: 3.375,G,TWICE DAILY
     Route: 042
     Dates: start: 20200527, end: 20200527
  62. PIPERACILLIN AND TAZOBACTAM [Concomitant]
     Active Substance: PIPERACILLIN SODIUM\TAZOBACTAM SODIUM
     Dosage: 3.375,G,THREE TIMES DAILY
     Route: 042
     Dates: start: 20200528, end: 20200528
  63. DALTEPARIN [Concomitant]
     Active Substance: DALTEPARIN
     Dosage: 5000,OTHER,DAILY
     Route: 058
     Dates: start: 20200531, end: 20200531
  64. PROCHLORPERAZINE. [Concomitant]
     Active Substance: PROCHLORPERAZINE
     Dosage: 10,MG,THREE TIMES DAILY
     Route: 042
     Dates: start: 20200527, end: 20200528
  65. MAGNESIUM SULFATE. [Concomitant]
     Active Substance: MAGNESIUM SULFATE
     Dosage: 2,G,DAILY
     Route: 042
     Dates: start: 20200518, end: 20200523
  66. OLANZAPINE. [Concomitant]
     Active Substance: OLANZAPINE
     Dosage: 5,MG,DAILY
     Route: 048
     Dates: start: 20200525, end: 20200529
  67. POTASSIUM CHLORIDE. [Concomitant]
     Active Substance: POTASSIUM CHLORIDE
     Dosage: 20,OTHER,DAILY
     Route: 042
     Dates: start: 20200531, end: 20200531
  68. CEFTRIAXONE. [Concomitant]
     Active Substance: CEFTRIAXONE
     Dosage: 1,G,DAILY
     Route: 042
     Dates: start: 20200616, end: 20200616
  69. PROCHLORPERAZINE. [Concomitant]
     Active Substance: PROCHLORPERAZINE
     Dosage: 10,MG,DAILY
     Route: 042
     Dates: start: 20200525, end: 20200526
  70. MIDAZOLAM. [Concomitant]
     Active Substance: MIDAZOLAM
     Dosage: 1,MG,TWICE DAILY
     Route: 042
     Dates: start: 20200512, end: 20200512
  71. ONDANSETRON [Concomitant]
     Active Substance: ONDANSETRON
     Dosage: 8,MG,TWICE DAILY
     Route: 048
     Dates: start: 20200523, end: 20200523
  72. ONDANSETRON [Concomitant]
     Active Substance: ONDANSETRON
     Dosage: 8,MG,TWICE DAILY
     Route: 042
     Dates: start: 20200524, end: 20200524
  73. ONDANSETRON [Concomitant]
     Active Substance: ONDANSETRON
     Dosage: 8,MG,TWICE DAILY
     Route: 042
     Dates: start: 20200526, end: 20200526
  74. SODIUM CHLORIDE 0.9% [Concomitant]
     Active Substance: SODIUM CHLORIDE
     Dosage: 1000,ML,DAILY
     Route: 042
     Dates: start: 20200527, end: 20200528
  75. ACYCLOVIR [ACICLOVIR SODIUM] [Concomitant]
     Active Substance: ACYCLOVIR
     Dosage: 800,MG,TWICE DAILY
     Route: 048
     Dates: start: 20200518, end: 20200601
  76. LEVETIRACETAM. [Concomitant]
     Active Substance: LEVETIRACETAM
     Dosage: 750,MG,DAILY
     Route: 048
     Dates: start: 20200517, end: 20200517
  77. ACETAMINOPHEN. [Concomitant]
     Active Substance: ACETAMINOPHEN
     Dosage: 650,MG,DAILY
     Route: 048
     Dates: start: 20200525, end: 20200525
  78. MAGNESIUM SULFATE. [Concomitant]
     Active Substance: MAGNESIUM SULFATE
     Dosage: 2,G,AS NECESSARY
     Route: 042
     Dates: start: 20200531, end: 20200531
  79. MAGNESIUM SULFATE. [Concomitant]
     Active Substance: MAGNESIUM SULFATE
     Dosage: 1,G,DAILY
     Route: 042
     Dates: start: 20200601, end: 20200601
  80. LORAZEPAM. [Concomitant]
     Active Substance: LORAZEPAM
     Dosage: 0.25,MG,DAILY
     Route: 048
     Dates: start: 20200523, end: 20200523
  81. LORAZEPAM. [Concomitant]
     Active Substance: LORAZEPAM
     Dosage: 0.25,MG,TWICE DAILY
     Route: 042
     Dates: start: 20200528, end: 20200528
  82. OXYCODONE [Concomitant]
     Active Substance: OXYCODONE
     Dosage: 5,MG,DAILY
     Route: 048
     Dates: start: 20200527, end: 20200527
  83. OXYCODONE [Concomitant]
     Active Substance: OXYCODONE
     Dosage: 5,MG,TWICE DAILY
     Route: 048
     Dates: start: 20200528, end: 20200528
  84. POTASSIUM CHLORIDE. [Concomitant]
     Active Substance: POTASSIUM CHLORIDE
     Dosage: 20,OTHER,DAILY
     Route: 042
     Dates: start: 20200526, end: 20200526
  85. LOPERAMIDE [Concomitant]
     Active Substance: LOPERAMIDE
     Dosage: 2,MG,DAILY
     Route: 048
     Dates: start: 20200530, end: 20200530
  86. FLUDARABINE [Suspect]
     Active Substance: FLUDARABINE PHOSPHATE
     Indication: BONE MARROW CONDITIONING REGIMEN
     Dosage: 30
     Route: 042
     Dates: start: 20200513, end: 20200515
  87. FINASTERIDE. [Concomitant]
     Active Substance: FINASTERIDE
     Dosage: 5,MG,DAILY
     Route: 048
     Dates: start: 2000
  88. SODIUM CHLORIDE 0.9% [Concomitant]
     Active Substance: SODIUM CHLORIDE
     Dosage: 1000,ML,DAILY
     Route: 042
     Dates: start: 20200518, end: 20200518
  89. SODIUM CHLORIDE 0.9% [Concomitant]
     Active Substance: SODIUM CHLORIDE
     Dosage: 500,ML,DAILY
     Route: 042
     Dates: start: 20200520, end: 20200520
  90. SODIUM CHLORIDE 0.9% [Concomitant]
     Active Substance: SODIUM CHLORIDE
     Dosage: 1000,ML,DAILY
     Route: 042
     Dates: start: 20200522, end: 20200522
  91. SODIUM CHLORIDE 0.9% [Concomitant]
     Active Substance: SODIUM CHLORIDE
     Dosage: 1000,ML,DAILY
     Route: 042
     Dates: start: 20200609, end: 20200609
  92. ACETAMINOPHEN. [Concomitant]
     Active Substance: ACETAMINOPHEN
     Dosage: 650,MG,THREE TIMES DAILY
     Route: 048
     Dates: start: 20200526, end: 20200526
  93. FLUCONAZOLE. [Concomitant]
     Active Substance: FLUCONAZOLE
     Dosage: 400,MG,DAILY
     Route: 048
     Dates: start: 20200518, end: 20200529
  94. LORAZEPAM. [Concomitant]
     Active Substance: LORAZEPAM
     Dosage: 0.5,MG,AS NECESSARY
     Route: 042
     Dates: start: 20200526, end: 20200527
  95. DOCUSATE [Concomitant]
     Active Substance: DOCUSATE
     Dosage: 50?8.6,MG,DAILY
     Route: 048
     Dates: start: 20200525, end: 20200525
  96. OLANZAPINE. [Concomitant]
     Active Substance: OLANZAPINE
     Dosage: 2.5,MG,DAILY
     Route: 048
     Dates: start: 20200530, end: 20200531
  97. POTASSIUM CHLORIDE. [Concomitant]
     Active Substance: POTASSIUM CHLORIDE
     Dosage: 20,OTHER,DAILY
     Route: 048
     Dates: start: 20200527, end: 20200527
  98. PIPERACILLIN AND TAZOBACTAM [Concomitant]
     Active Substance: PIPERACILLIN SODIUM\TAZOBACTAM SODIUM
     Dosage: 3.375,G,DAILY
     Route: 042
     Dates: start: 20200529, end: 20200529
  99. ALTEPLASE. [Concomitant]
     Active Substance: ALTEPLASE
     Dosage: 2,MG,TWICE DAILY
     Route: 042
     Dates: start: 20200528, end: 20200528
  100. FILGRASTIM [Concomitant]
     Active Substance: FILGRASTIM
     Dosage: 480,UG,DAILY
     Route: 058
     Dates: start: 20200617, end: 20200617

REACTIONS (1)
  - Confusional state [Recovered/Resolved]

NARRATIVE: CASE EVENT DATE: 20200609
